FAERS Safety Report 9139603 (Version 1)
Quarter: 2013Q1

REPORT INFORMATION
  Report Type: Report from Study
  Country: GB (occurrence: GB)
  Receive Date: 20130305
  Receipt Date: 20130305
  Transmission Date: 20140127
  Serious: Yes (Hospitalization)
  Sender: FDA-Public Use
  Company Number: GB-UCBSA-079731

PATIENT
  Age: 78 Year
  Sex: Female

DRUGS (8)
  1. CIMZIA [Suspect]
     Indication: RHEUMATOID ARTHRITIS
     Route: 058
     Dates: start: 20120606
  2. METHOTREXATE [Concomitant]
  3. SULPHASALAZINE [Concomitant]
  4. HYDROXYCHLOROQUINE [Concomitant]
  5. THYROXINE [Concomitant]
  6. ADCAL D3 [Concomitant]
  7. AMLODIPINE [Concomitant]
  8. CETRIZINE [Concomitant]

REACTIONS (2)
  - Psoriasis [Not Recovered/Not Resolved]
  - Angioedema [Not Recovered/Not Resolved]
